FAERS Safety Report 4926647-1 (Version None)
Quarter: 2006Q1

REPORT INFORMATION
  Report Type: 
  Country: None (occurrence: None)
  Receive Date: 20060228
  Receipt Date: 20050517
  Transmission Date: 20060701
  Serious: No
  Sender: FDA-Public Use
  Company Number: US-GLAXOSMITHKLINE-A0558964A

PATIENT
  Age: 45 Year
  Sex: Female
  Weight: 73.6 kg

DRUGS (8)
  1. LAMICTAL [Suspect]
     Indication: BIPOLAR DISORDER
     Dosage: 100MG PER DAY
     Route: 048
     Dates: start: 20041020, end: 20050525
  2. DEPAKOTE [Concomitant]
     Indication: BIPOLAR DISORDER
     Dosage: 500MG TWICE PER DAY
     Dates: start: 20050210
  3. RISPERDAL [Concomitant]
     Route: 048
     Dates: start: 19980526
  4. SEROQUEL [Concomitant]
     Dosage: 800MG PER DAY
     Route: 048
     Dates: start: 20040902
  5. ESKALITH [Concomitant]
     Dosage: 450MG TWICE PER DAY
     Route: 048
     Dates: start: 20050202
  6. ATIVAN [Concomitant]
     Dosage: .5MG TWICE PER DAY
  7. LASIX [Concomitant]
     Dosage: 40MG PER DAY
  8. POTASSIUM CHLORIDE [Concomitant]

REACTIONS (2)
  - JOINT SWELLING [None]
  - OEDEMA PERIPHERAL [None]
